FAERS Safety Report 14115756 (Version 1)
Quarter: 2017Q4

REPORT INFORMATION
  Report Type: Spontaneous
  Country: ES (occurrence: ES)
  Receive Date: 20171023
  Receipt Date: 20171023
  Transmission Date: 20180321
  Serious: Yes (Hospitalization, Other)
  Sender: FDA-Public Use
  Company Number: ES-FRESENIUS KABI-FK201708753

PATIENT
  Age: 61 Year
  Sex: Male

DRUGS (3)
  1. LINEZOLID (MANUFACTURER UNKNOWN) [Suspect]
     Active Substance: LINEZOLID
     Indication: ANTIBIOTIC PROPHYLAXIS
     Route: 042
  2. LINEZOLID (MANUFACTURER UNKNOWN) [Suspect]
     Active Substance: LINEZOLID
     Route: 048
  3. MEROPENEM. [Concomitant]
     Active Substance: MEROPENEM
     Indication: ANTIBIOTIC THERAPY
     Route: 042

REACTIONS (4)
  - Reticulocytopenia [Recovered/Resolved]
  - Mucous membrane disorder [Recovered/Resolved]
  - Anaemia [Recovered/Resolved]
  - Pallor [Recovered/Resolved]
